FAERS Safety Report 17406669 (Version 1)
Quarter: 2020Q1

REPORT INFORMATION
  Report Type: Spontaneous
  Country: US (occurrence: US)
  Receive Date: 20200212
  Receipt Date: 20200212
  Transmission Date: 20200409
  Serious: No
  Sender: FDA-Public Use
  Company Number: US-UNITED THERAPEUTICS-UNT-2020-001174

PATIENT
  Age: 56 Year
  Sex: Female

DRUGS (2)
  1. TYVASO [Suspect]
     Active Substance: TREPROSTINIL
     Indication: PULMONARY ARTERIAL HYPERTENSION
     Dosage: 36 ?G, QID
     Dates: start: 20191217
  2. TYVASO [Suspect]
     Active Substance: TREPROSTINIL
     Dosage: 60 ?G, QID

REACTIONS (6)
  - Headache [Unknown]
  - Oedema [Unknown]
  - Off label use [Unknown]
  - Diarrhoea [Recovering/Resolving]
  - Cough [Unknown]
  - Tremor [Unknown]

NARRATIVE: CASE EVENT DATE: 202001
